FAERS Safety Report 10037067 (Version 1)
Quarter: 2014Q1

REPORT INFORMATION
  Report Type: Spontaneous
  Country: CN (occurrence: CN)
  Receive Date: 20140326
  Receipt Date: 20140326
  Transmission Date: 20141002
  Serious: Yes (Life-Threatening)
  Sender: FDA-Public Use
  Company Number: CN-BRISTOL-MYERS SQUIBB COMPANY-20547196

PATIENT
  Age: 30 Year
  Sex: Female

DRUGS (1)
  1. TAXOL [Suspect]
     Route: 042

REACTIONS (1)
  - Hypertension [Unknown]
